FAERS Safety Report 15424841 (Version 1)
Quarter: 2018Q3

REPORT INFORMATION
  Report Type: Spontaneous
  Country: ES (occurrence: ES)
  Receive Date: 20180925
  Receipt Date: 20180925
  Transmission Date: 20181010
  Serious: Yes (Hospitalization, Other)
  Sender: FDA-Public Use
  Company Number: ES-JNJFOC-20180919661

PATIENT
  Age: 39 Year
  Sex: Female

DRUGS (3)
  1. GABAPENTIN. [Interacting]
     Active Substance: GABAPENTIN
     Indication: SPINAL PAIN
     Route: 048
     Dates: start: 20160817, end: 20180818
  2. FENTANYL. [Suspect]
     Active Substance: FENTANYL
     Indication: SPINAL PAIN
     Route: 062
     Dates: start: 20160817, end: 20160818
  3. DIAZEPAM. [Interacting]
     Active Substance: DIAZEPAM
     Indication: SPINAL PAIN
     Route: 048
     Dates: start: 2015

REACTIONS (2)
  - Drug interaction [Recovered/Resolved]
  - Encephalopathy [Recovered/Resolved]

NARRATIVE: CASE EVENT DATE: 20160818
